FAERS Safety Report 8320896-0 (Version None)
Quarter: 2012Q2

REPORT INFORMATION
  Report Type: 
  Country: None (occurrence: None)
  Receive Date: 20120430
  Receipt Date: 20120423
  Transmission Date: 20120825
  Serious: Yes (Other)
  Sender: FDA-Public Use
  Company Number: PHEH2012US007677

PATIENT
  Sex: Female
  Weight: 81 kg

DRUGS (13)
  1. ALLEGRA [Concomitant]
  2. MECLIZINE [Concomitant]
  3. OXYCODONE HYDROCHLORIDE [Concomitant]
  4. DIAZEPAN [Concomitant]
  5. LASIX [Concomitant]
  6. IRON DEXTRAN [Concomitant]
  7. SODIUM BICARBONATE [Concomitant]
  8. CALCIUM CARBONATE [Concomitant]
  9. MAGNESIUM [Concomitant]
  10. COUMADIN [Concomitant]
  11. GLEEVEC [Suspect]
     Dosage: 400 MG, DAILY
  12. ALLOPURINOL [Concomitant]
  13. SYNTHROID [Concomitant]

REACTIONS (3)
  - FALL [None]
  - INJURY [None]
  - COLON CANCER [None]
